FAERS Safety Report 10489541 (Version 2)
Quarter: 2014Q4

REPORT INFORMATION
  Report Type: Report from Study
  Country: None (occurrence: US)
  Receive Date: 20141002
  Receipt Date: 20141002
  Transmission Date: 20150528
  Serious: Yes (Other)
  Sender: FDA-Public Use
  Company Number: US-CELGENE-163-21880-14064327

PATIENT
  Age: 84 Year
  Sex: Male
  Weight: 72.1 kg

DRUGS (30)
  1. ROBITUSSIN AC [Concomitant]
     Indication: PAIN
     Dosage: 10-100MG/5ML 10 ML
     Route: 048
     Dates: start: 20131015
  2. RITUXAN [Suspect]
     Active Substance: RITUXIMAB
     Indication: B-CELL LYMPHOMA
     Route: 041
     Dates: start: 20130422, end: 20140625
  3. FILGRASTIM [Concomitant]
     Active Substance: FILGRASTIM
     Dosage: ONE DOSE
     Route: 058
     Dates: start: 20131106
  4. ECOTRIN [Concomitant]
     Active Substance: ASPIRIN
     Dosage: 40 MILLIGRAM
     Route: 065
     Dates: start: 1990
  5. AMOXICILLIN. [Concomitant]
     Active Substance: AMOXICILLIN
     Indication: COUGH
  6. REVLIMID [Suspect]
     Active Substance: LENALIDOMIDE
     Indication: B-CELL LYMPHOMA
     Route: 048
     Dates: start: 20131008, end: 20131124
  7. FISH OIL [Concomitant]
     Active Substance: FISH OIL
     Indication: PROPHYLAXIS
     Dosage: 2000 UNITS
     Route: 065
     Dates: start: 2008
  8. KLOR-CON [Concomitant]
     Active Substance: POTASSIUM CHLORIDE
     Indication: PROPHYLAXIS
     Dosage: 800 MILLIGRAM
     Route: 065
     Dates: start: 2000
  9. BACTRIM DS [Concomitant]
     Active Substance: SULFAMETHOXAZOLE\TRIMETHOPRIM
     Indication: PROPHYLAXIS
     Dosage: 800MG-160MG
     Route: 065
     Dates: start: 20130419
  10. AMOXICILLIN. [Concomitant]
     Active Substance: AMOXICILLIN
     Indication: PAIN
     Route: 065
     Dates: start: 20131015, end: 20131022
  11. RITUXAN [Suspect]
     Active Substance: RITUXIMAB
     Route: 041
     Dates: start: 20130430, end: 20130910
  12. FUROSEMIDE. [Concomitant]
     Active Substance: FUROSEMIDE
     Route: 065
     Dates: start: 1990
  13. PANTOPRAZOLE [Concomitant]
     Active Substance: PANTOPRAZOLE SODIUM
     Indication: PROPHYLAXIS
     Route: 065
     Dates: start: 2002
  14. VITAMIN D3 [Concomitant]
     Active Substance: CHOLECALCIFEROL
     Indication: PROPHYLAXIS
     Dosage: 1000 UNITS
     Route: 065
     Dates: start: 2008
  15. ACYCLOVIR. [Concomitant]
     Active Substance: ACYCLOVIR
     Indication: PROPHYLAXIS
     Route: 065
     Dates: start: 20130419, end: 20131021
  16. ZITHROMAX [Concomitant]
     Active Substance: AZITHROMYCIN DIHYDRATE
     Route: 065
     Dates: start: 20130614, end: 20130618
  17. BENDAMUSTINE [Suspect]
     Active Substance: BENDAMUSTINE
     Indication: B-CELL LYMPHOMA
     Route: 041
     Dates: start: 20130422
  18. BENDAMUSTINE [Suspect]
     Active Substance: BENDAMUSTINE
     Dosage: 250 MICROGRAM
     Route: 041
     Dates: start: 20130430, end: 20130910
  19. REVLIMID [Suspect]
     Active Substance: LENALIDOMIDE
     Route: 048
     Dates: start: 2013, end: 20131203
  20. RITUXAN [Suspect]
     Active Substance: RITUXIMAB
     Route: 041
     Dates: start: 2013, end: 20131203
  21. LIPITOR [Concomitant]
     Active Substance: ATORVASTATIN CALCIUM
     Dosage: 300 MILLIGRAM
     Route: 065
     Dates: start: 2000
  22. METOPROLOL [Concomitant]
     Active Substance: METOPROLOL
     Route: 065
     Dates: start: 2005
  23. COMPAZINE [Concomitant]
     Active Substance: PROCHLORPERAZINE MALEATE
     Indication: NAUSEA
     Route: 048
     Dates: start: 20130422
  24. RITUXAN [Suspect]
     Active Substance: RITUXIMAB
     Dosage: 40 MILLIGRAM
     Route: 041
     Dates: start: 20140108
  25. ALLOPURINOL. [Concomitant]
     Active Substance: ALLOPURINOL
     Indication: PROPHYLAXIS
     Dosage: 1500 MILLIGRAM
     Route: 065
     Dates: start: 20130419, end: 20130715
  26. RITUXAN [Suspect]
     Active Substance: RITUXIMAB
     Dosage: 325 MILLIGRAM
     Route: 041
     Dates: start: 20131008, end: 20131105
  27. DIGOXIN. [Concomitant]
     Active Substance: DIGOXIN
     Dosage: 100 MILLIGRAM
     Route: 065
     Dates: start: 1980
  28. RAMIPRIL. [Concomitant]
     Active Substance: RAMIPRIL
     Dosage: 40 MILLIGRAM
     Route: 065
     Dates: start: 2002
  29. VICODIN [Concomitant]
     Active Substance: ACETAMINOPHEN\HYDROCODONE BITARTRATE
     Indication: PAIN
     Dosage: 5/300
     Route: 048
     Dates: start: 20130422
  30. ROBITUSSIN AC [Concomitant]
     Indication: COUGH

REACTIONS (3)
  - Myelodysplastic syndrome [Not Recovered/Not Resolved]
  - Basal cell carcinoma [Recovering/Resolving]
  - Squamous cell carcinoma of skin [Recovering/Resolving]

NARRATIVE: CASE EVENT DATE: 20140611
